FAERS Safety Report 21439142 (Version 1)
Quarter: 2022Q4

REPORT INFORMATION
  Report Type: Spontaneous
  Country: US (occurrence: None)
  Receive Date: 20221009
  Receipt Date: 20221009
  Transmission Date: 20230113
  Serious: Yes (Disabling, Other)
  Sender: FDA-Public Use
  Company Number: None

PATIENT
  Age: 50 Year
  Sex: Male
  Weight: 76.5 kg

DRUGS (1)
  1. .DELTA.9-TETRAHYDROCANNABINOL\HERBALS [Suspect]
     Active Substance: .DELTA.9-TETRAHYDROCANNABINOL\HERBALS
     Indication: Anxiety
     Dosage: OTHER QUANTITY : 25 SEVINGS;?FREQUENCY : DAILY;?
     Route: 048
     Dates: start: 20220913, end: 20220927

REACTIONS (7)
  - Bladder discomfort [None]
  - Pain [None]
  - Micturition urgency [None]
  - Urinary tract injury [None]
  - Tinnitus [None]
  - Muscle spasms [None]
  - Insomnia [None]

NARRATIVE: CASE EVENT DATE: 20221004
